FAERS Safety Report 5637532-4 (Version None)
Quarter: 2008Q1

REPORT INFORMATION
  Report Type: 
  Country: None (occurrence: None)
  Receive Date: 20080225
  Receipt Date: 20080215
  Transmission Date: 20080703
  Serious: Yes (Other)
  Sender: FDA-Public Use
  Company Number: US-PFIZER INC-2008014887

PATIENT
  Sex: Female
  Weight: 91 kg

DRUGS (7)
  1. CELEBREX [Suspect]
  2. LYRICA [Suspect]
     Indication: FIBROMYALGIA
     Dates: start: 20060101, end: 20071101
  3. TOPROL [Concomitant]
  4. PLAVIX [Concomitant]
  5. ZESTRIL [Concomitant]
  6. GLUCOPHAGE [Concomitant]
  7. PERCOCET [Concomitant]

REACTIONS (4)
  - NIGHTMARE [None]
  - SLEEP DISORDER [None]
  - STOMACH DISCOMFORT [None]
  - WEIGHT INCREASED [None]
